FAERS Safety Report 8769259 (Version 1)
Quarter: 2012Q4

REPORT INFORMATION
  Report Type: 
  Country: US (occurrence: US)
  Receive Date: 20120904
  Receipt Date: 20120904
  Transmission Date: 20130627
  Serious: Yes (Other)
  Sender: FDA-Public Use
  Company Number: US-AMGEN-USASP2012048549

PATIENT
  Age: 74 Year
  Sex: Female
  Weight: 65.8 kg

DRUGS (4)
  1. ENBREL [Suspect]
     Indication: PSORIASIS
     Dosage: 50 mg, 2 times/wk
     Route: 058
     Dates: start: 20111004, end: 20111020
  2. ENBREL [Suspect]
     Indication: PSORIATIC ARTHROPATHY
  3. CORTICOSTEROIDS [Concomitant]
  4. ULTRAVATE                          /01186802/ [Concomitant]
     Indication: PSORIASIS
     Dosage: 1 dose (s), 2 in 1 day
     Dates: start: 20110617

REACTIONS (1)
  - Pruritus generalised [Recovered/Resolved]
